FAERS Safety Report 5805819-8 (Version None)
Quarter: 2008Q3

REPORT INFORMATION
  Report Type: 
  Country: None (occurrence: None)
  Receive Date: 20080708
  Receipt Date: 20080624
  Transmission Date: 20090109
  Serious: Yes (Hospitalization)
  Sender: FDA-Public Use
  Company Number: 235014J08USA

PATIENT
  Age: 47 Year
  Sex: Female
  Weight: 133.3575 kg

DRUGS (15)
  1. REBIF [Suspect]
     Indication: MULTIPLE SCLEROSIS
     Dosage: 44 MCG, 3 IN 1 WEEKS, SUBCUTANEOUS
     Route: 058
     Dates: start: 20080423, end: 20080530
  2. CYMBALTA [Concomitant]
  3. PROTONIX [Concomitant]
  4. LYRICA [Concomitant]
  5. SIMVASTATIN [Concomitant]
  6. ENABLEX (DARIFENACIN) [Concomitant]
  7. DIOVAN [Concomitant]
  8. METFORMIN HCL [Concomitant]
  9. ASPIRIN [Concomitant]
  10. VICODIN [Concomitant]
  11. DARVOCET [Concomitant]
  12. CYCLOBENZAPRINE [Concomitant]
  13. IMITREX [Concomitant]
  14. KLONOPIN [Concomitant]
  15. HUMULIN (INSULIN HUMAN) [Concomitant]

REACTIONS (6)
  - ALANINE AMINOTRANSFERASE INCREASED [None]
  - ASPARTATE AMINOTRANSFERASE INCREASED [None]
  - BLOOD CHLORIDE DECREASED [None]
  - BLOOD SODIUM DECREASED [None]
  - OESOPHAGEAL SPASM [None]
  - PCO2 INCREASED [None]
